FAERS Safety Report 25325488 (Version 1)
Quarter: 2025Q2

REPORT INFORMATION
  Report Type: Spontaneous
  Country: FR (occurrence: FR)
  Receive Date: 20250516
  Receipt Date: 20250516
  Transmission Date: 20250717
  Serious: No
  Sender: MYLAN
  Company Number: FR-MYLANLABS-2025M1018721

PATIENT
  Age: 31 Year
  Sex: Male

DRUGS (1)
  1. ARIXTRA [Suspect]
     Active Substance: FONDAPARINUX SODIUM
     Indication: Product used for unknown indication
     Dosage: 1 DOSAGE FORM, QD (1 INJECTION EVERY DAY FOR 10 DAYS)
     Dates: start: 202502

REACTIONS (2)
  - Incorrect dose administered [Unknown]
  - Liquid product physical issue [Unknown]

NARRATIVE: CASE EVENT DATE: 20250201
